FAERS Safety Report 6479826-9 (Version None)
Quarter: 2009Q4

REPORT INFORMATION
  Report Type: 
  Country: None (occurrence: None)
  Receive Date: 20091208
  Receipt Date: 20091130
  Transmission Date: 20100525
  Serious: Yes (Other)
  Sender: FDA-Public Use
  Company Number: US-ROCHE-662120

PATIENT
  Sex: Male
  Weight: 69.5 kg

DRUGS (3)
  1. PEGASYS [Suspect]
     Indication: HEPATITIS C
     Route: 058
     Dates: start: 20090422, end: 20091022
  2. RIBAVIRIN [Suspect]
     Indication: HEPATITIS C
     Route: 048
     Dates: start: 20090422, end: 20091022
  3. ATENOLOL [Concomitant]

REACTIONS (2)
  - BLOOD IRON ABNORMAL [None]
  - PORPHYRIA NON-ACUTE [None]
